FAERS Safety Report 4381578-3 (Version None)
Quarter: 2004Q2

REPORT INFORMATION
  Report Type: 
  Country: None (occurrence: None)
  Receive Date: 20040615
  Receipt Date: 20040604
  Transmission Date: 20050107
  Serious: Yes (Death, Hospitalization)
  Sender: FDA-Public Use
  Company Number: 2004216571US

PATIENT
  Age: 77 Year
  Sex: Male
  Weight: 76.4 kg

DRUGS (6)
  1. ESTRACYT (ESTRAMUSTINE PHOSPHATE) CAPSULE [Suspect]
     Indication: PROSTATE CANCER
     Dosage: 280 MG, TID, ORAL
     Route: 048
     Dates: start: 20040517, end: 20040528
  2. PACLITAXEL [Suspect]
     Indication: PROSTATE CANCER
     Dosage: 255 MG, CYCLIC, IV
     Route: 042
     Dates: start: 20040518, end: 20040518
  3. ETOPOSIDE [Suspect]
     Indication: PROSTATE CANCER
     Dosage: 50 MG, BID, ORAL
     Route: 048
     Dates: start: 20040517, end: 20040528
  4. WARFARIN SODIUM [Concomitant]
  5. CELEBREX [Concomitant]
  6. ZOLADEX [Concomitant]

REACTIONS (9)
  - ARRHYTHMIA [None]
  - LOSS OF CONSCIOUSNESS [None]
  - NAUSEA [None]
  - NEUTROPHIL COUNT DECREASED [None]
  - PAIN IN EXTREMITY [None]
  - PULSE ABSENT [None]
  - PUPIL FIXED [None]
  - URINARY INCONTINENCE [None]
  - WHITE BLOOD CELL COUNT DECREASED [None]
